FAERS Safety Report 8129323-X (Version None)
Quarter: 2012Q1

REPORT INFORMATION
  Report Type: 
  Country: None (occurrence: None)
  Receive Date: 20120210
  Receipt Date: 20120206
  Transmission Date: 20120608
  Serious: Yes (Death, Other)
  Sender: FDA-Public Use
  Company Number: PHHY2011JP70487

PATIENT
  Sex: Male

DRUGS (9)
  1. RIFAMPICIN [Suspect]
     Dosage: 450 MG, UNK
  2. ISONIAZID [Suspect]
     Dosage: 0.4 G, UNK
     Dates: start: 20050225
  3. ETHAMBUTOL HYDROCHLORIDE [Suspect]
     Indication: TUBERCULOSIS
     Dosage: 750 MG, UNK
     Dates: end: 20050221
  4. ETHAMBUTOL HYDROCHLORIDE [Suspect]
     Dosage: 750 MG, UNK
     Dates: start: 20050302
  5. RIFAMPICIN [Suspect]
     Indication: TUBERCULOSIS
     Dosage: 450 MG, UNK
     Dates: end: 20050221
  6. RIFAMPICIN [Suspect]
     Dosage: 150 MG, UNK
     Dates: start: 20050312
  7. PYRAZINAMIDE [Suspect]
     Dosage: 1.5 G, UNK
     Dates: start: 20050306
  8. ISONIAZID [Suspect]
     Indication: TUBERCULOSIS
     Dosage: 0.4 G, UNK
     Dates: end: 20050221
  9. PYRAZINAMIDE [Suspect]
     Indication: TUBERCULOSIS
     Dosage: 1.5 G, UNK
     Dates: end: 20050221

REACTIONS (8)
  - HEPATITIS FULMINANT [None]
  - DECREASED APPETITE [None]
  - FATIGUE [None]
  - RASH [None]
  - ABDOMINAL DISTENSION [None]
  - JAUNDICE [None]
  - OEDEMA [None]
  - GAIT DISTURBANCE [None]
